FAERS Safety Report 5800472-1 (Version None)
Quarter: 2008Q3

REPORT INFORMATION
  Report Type: 
  Country: None (occurrence: None)
  Receive Date: 20080703
  Receipt Date: 20080702
  Transmission Date: 20090109
  Serious: Yes (Hospitalization)
  Sender: FDA-Public Use
  Company Number: A0734167A

PATIENT
  Sex: Male

DRUGS (2)
  1. ADVAIR DISKUS 100/50 [Suspect]
     Indication: DRUG USE FOR UNKNOWN INDICATION
     Dosage: 1PUFF TWICE PER DAY
     Route: 055
  2. METHADON HCL TAB [Concomitant]

REACTIONS (3)
  - ADVERSE EVENT [None]
  - LUNG INFECTION [None]
  - PHARMACEUTICAL PRODUCT COMPLAINT [None]
